FAERS Safety Report 8936591 (Version 1)
Quarter: 2012Q4

REPORT INFORMATION
  Report Type: Report from Study
  Country: KR (occurrence: KR)
  Receive Date: 20121130
  Receipt Date: 20121130
  Transmission Date: 20130627
  Serious: Yes (Hospitalization)
  Sender: FDA-Public Use
  Company Number: KR-BAYER-2012-109039

PATIENT
  Age: 65 Year
  Sex: Male
  Weight: 51 kg

DRUGS (17)
  1. NEXAVAR [Suspect]
     Indication: CARCINOMA HEPATOCELLULAR
     Dosage: 400 mg, BID
     Route: 048
     Dates: start: 20120924, end: 20121016
  2. TYLENOL EXTENDED RELIEF [Concomitant]
     Indication: PRODUCT USED FOR UNKNOWN INDICATION
     Dosage: Daily dose 650 mg
     Dates: start: 20120913, end: 20121004
  3. RANITIDINE HYDROCHLORIDE [Concomitant]
     Indication: PRODUCT USED FOR UNKNOWN INDICATION
     Dosage: Daily dose 150 mg
     Dates: start: 20120913, end: 20121003
  4. RANITIDINE HYDROCHLORIDE [Concomitant]
     Indication: PRODUCT USED FOR UNKNOWN INDICATION
     Dosage: Daily dose 300 mg
     Dates: start: 20121004, end: 20121016
  5. RANITIDINE HYDROCHLORIDE [Concomitant]
     Indication: PRODUCT USED FOR UNKNOWN INDICATION
     Dosage: Daily dose 50 mg
     Route: 042
     Dates: start: 20121016, end: 20121016
  6. RANITIDINE HYDROCHLORIDE [Concomitant]
     Indication: PRODUCT USED FOR UNKNOWN INDICATION
     Dosage: 100 mg/day
     Dates: start: 20121017, end: 20121017
  7. RANITIDINE HYDROCHLORIDE [Concomitant]
     Indication: PRODUCT USED FOR UNKNOWN INDICATION
     Dosage: 100 mg/day
     Dates: start: 20121021, end: 20121030
  8. RANITIDINE HYDROCHLORIDE [Concomitant]
     Indication: PRODUCT USED FOR UNKNOWN INDICATION
     Dosage: 300 mg/day
     Dates: start: 20121023
  9. SEVIKAR [Concomitant]
     Indication: PRODUCT USED FOR UNKNOWN INDICATION
     Dosage: 5/40 mg
     Dates: start: 20120914, end: 20121004
  10. CLOPIDOGREL BISULFATE [Concomitant]
     Indication: PRODUCT USED FOR UNKNOWN INDICATION
     Dosage: Daily dose 75 mg
     Dates: start: 20120914, end: 20121004
  11. MEGACE [Concomitant]
     Indication: PRODUCT USED FOR UNKNOWN INDICATION
     Dosage: Daily dose 20 ml
     Dates: start: 20120914, end: 20121016
  12. MEGACE [Concomitant]
     Indication: PRODUCT USED FOR UNKNOWN INDICATION
     Dosage: Daily dose 20 mL
     Dates: start: 20121023
  13. ZIPAN [Concomitant]
     Indication: PRODUCT USED FOR UNKNOWN INDICATION
     Dosage: Daily dose 100 mg
     Dates: start: 20120915, end: 20121016
  14. ZIPAN [Concomitant]
     Indication: PRODUCT USED FOR UNKNOWN INDICATION
     Dosage: 50 mg/day
     Dates: start: 20121023, end: 20121023
  15. MUTERAN [Concomitant]
     Indication: PRODUCT USED FOR UNKNOWN INDICATION
     Dosage: Daily dose 400 mg
     Dates: start: 20120914, end: 20121016
  16. MUTERAN [Concomitant]
     Indication: PRODUCT USED FOR UNKNOWN INDICATION
     Dosage: 400 mg/daily
     Dates: start: 20121023
  17. MEIACT [Concomitant]
     Indication: PRODUCT USED FOR UNKNOWN INDICATION
     Dosage: Daily dose 3 DF
     Dates: start: 20120924, end: 20121004

REACTIONS (8)
  - Febrile neutropenia [Recovered/Resolved]
  - White blood cell count decreased [Recovered/Resolved]
  - Pyrexia [Recovered/Resolved]
  - Renal failure acute [Recovered/Resolved]
  - Blood creatinine increased [Recovered/Resolved]
  - Pain [Recovered/Resolved]
  - General physical health deterioration [None]
  - Dehydration [None]
